FAERS Safety Report 11200203 (Version 2)
Quarter: 2015Q3

REPORT INFORMATION
  Report Type: Report from Study
  Country: FR (occurrence: FR)
  Receive Date: 20150618
  Receipt Date: 20150709
  Transmission Date: 20151125
  Serious: Yes (Hospitalization)
  Sender: FDA-Public Use
  Company Number: FR-ABBVIE-15P-056-1408109-00

PATIENT
  Age: 54 Year
  Sex: Male
  Weight: 51 kg

DRUGS (1)
  1. DUODOPA [Suspect]
     Active Substance: CARBIDOPA\LEVODOPA
     Indication: PARKINSON^S DISEASE
     Dosage: 3.9 ML/HR
     Route: 050
     Dates: start: 20150602

REACTIONS (4)
  - Hyperthermia [Not Recovered/Not Resolved]
  - Productive cough [Not Recovered/Not Resolved]
  - Lung disorder [Recovering/Resolving]
  - Pyrexia [Not Recovered/Not Resolved]

NARRATIVE: CASE EVENT DATE: 20150608
